FAERS Safety Report 16198536 (Version 1)
Quarter: 2019Q2

REPORT INFORMATION
  Report Type: Spontaneous
  Country: US (occurrence: US)
  Receive Date: 20190312
  Receipt Date: 20190312
  Transmission Date: 20190711
  Serious: No
  Sender: FDA-Public Use
  Company Number: None

PATIENT
  Sex: Male

DRUGS (1)
  1. REPATHA [Suspect]
     Active Substance: EVOLOCUMAB
     Indication: HYPERLIPIDAEMIA
     Dosage: ?          OTHER FREQUENCY:EVERY 14 DAYS ;?
     Route: 058
     Dates: start: 20181221

REACTIONS (5)
  - Brain oedema [None]
  - Arthralgia [None]
  - Dyspnoea [None]
  - Dizziness [None]
  - Myalgia [None]
